FAERS Safety Report 12729561 (Version 2)
Quarter: 2016Q4

REPORT INFORMATION
  Report Type: Report from Study
  Country: US (occurrence: US)
  Receive Date: 20160909
  Receipt Date: 20161003
  Transmission Date: 20170207
  Serious: Yes (Hospitalization, Other)
  Sender: FDA-Public Use
  Company Number: US-JNJFOC-20160719721

PATIENT
  Age: 80 Year
  Sex: Female
  Weight: 63 kg

DRUGS (20)
  1. ATENOLOL. [Concomitant]
     Active Substance: ATENOLOL
  2. PREDNISONE. [Concomitant]
     Active Substance: PREDNISONE
     Dosage: 20MG PER DAY FOR 3 DAYS, THEN 1 TABLET PER DYA FOR 3 DAYS
  3. HYDROCHLOROTHIAZIDE. [Concomitant]
     Active Substance: HYDROCHLOROTHIAZIDE
  4. MIRALAX [Concomitant]
     Active Substance: POLYETHYLENE GLYCOL 3350
  5. IMBRUVICA [Suspect]
     Active Substance: IBRUTINIB
     Indication: WALDENSTROM^S MACROGLOBULINAEMIA
     Route: 048
     Dates: start: 20160503
  6. DIGOXIN. [Concomitant]
     Active Substance: DIGOXIN
  7. SYNTHROID [Concomitant]
     Active Substance: LEVOTHYROXINE SODIUM
  8. LASIX [Concomitant]
     Active Substance: FUROSEMIDE
  9. AFINITOR [Concomitant]
     Active Substance: EVEROLIMUS
  10. VALTREX [Concomitant]
     Active Substance: VALACYCLOVIR HYDROCHLORIDE
  11. COUMADIN [Concomitant]
     Active Substance: WARFARIN SODIUM
     Dosage: MONDAY AND FRIDAY 3 MG TUESDAY AND THRUSDAY SATURDAY SUNDAY
  12. COLACE [Concomitant]
     Active Substance: DOCUSATE SODIUM
  13. ZOFRAN [Concomitant]
     Active Substance: ONDANSETRON HYDROCHLORIDE
  14. COMPAZINE [Concomitant]
     Active Substance: PROCHLORPERAZINE MALEATE
     Dosage: PRN
  15. ATIVAN [Concomitant]
     Active Substance: LORAZEPAM
     Dosage: PRN
  16. IMBRUVICA [Suspect]
     Active Substance: IBRUTINIB
     Indication: WALDENSTROM^S MACROGLOBULINAEMIA
     Route: 048
  17. POTASSIUM CHLORIDE. [Concomitant]
     Active Substance: POTASSIUM CHLORIDE
     Dosage: 1 TABLET WITH FOOD ONCE A DAY
  18. SENOKOT [Concomitant]
     Active Substance: SENNOSIDES
  19. POTASSIUM [Concomitant]
     Active Substance: POTASSIUM
  20. ZOFRAN [Concomitant]
     Active Substance: ONDANSETRON HYDROCHLORIDE

REACTIONS (4)
  - Atrial fibrillation [Recovered/Resolved]
  - Migraine [Unknown]
  - Cardiac failure congestive [Not Recovered/Not Resolved]
  - Pyrexia [Unknown]

NARRATIVE: CASE EVENT DATE: 201608
